FAERS Safety Report 17268687 (Version 1)
Quarter: 2020Q1

REPORT INFORMATION
  Report Type: Spontaneous
  Country: US (occurrence: US)
  Receive Date: 20200114
  Receipt Date: 20200114
  Transmission Date: 20200409
  Serious: Yes (Life-Threatening, Hospitalization)
  Sender: FDA-Public Use
  Company Number: None

PATIENT
  Age: 80 Year
  Sex: Female

DRUGS (2)
  1. ASPIRIN. [Suspect]
     Active Substance: ASPIRIN
  2. TICAGRELOR. [Suspect]
     Active Substance: TICAGRELOR

REACTIONS (7)
  - Haemoglobin decreased [None]
  - Deep vein thrombosis [None]
  - Clostridium difficile infection [None]
  - Peptic ulcer [None]
  - Dyspnoea [None]
  - Faeces discoloured [None]
  - Haemorrhage [None]

NARRATIVE: CASE EVENT DATE: 20190418
